FAERS Safety Report 6278711-5 (Version None)
Quarter: 2009Q3

REPORT INFORMATION
  Report Type: 
  Country: None (occurrence: None)
  Receive Date: 20090721
  Receipt Date: 20090713
  Transmission Date: 20100115
  Serious: Yes (Other)
  Sender: FDA-Public Use
  Company Number: WAES 0907USA02469

PATIENT
  Age: 71 Year
  Sex: Female
  Weight: 91.6266 kg

DRUGS (4)
  1. VYTORIN [Suspect]
     Indication: BLOOD CHOLESTEROL INCREASED
     Dosage: PO
     Route: 048
  2. LIPITOR [Suspect]
     Indication: BLOOD CHOLESTEROL INCREASED
     Dosage: 20 MG/DAILY/PO
     Route: 048
  3. ACTOS [Concomitant]
  4. CLARITIN [Concomitant]

REACTIONS (2)
  - ARTHROPATHY [None]
  - MYALGIA [None]
